FAERS Safety Report 14655809 (Version 1)
Quarter: 2018Q1

REPORT INFORMATION
  Report Type: Spontaneous
  Country: FR (occurrence: FR)
  Receive Date: 20180319
  Receipt Date: 20180319
  Transmission Date: 20180509
  Serious: Yes (Other)
  Sender: FDA-Public Use
  Company Number: FR-ASTRAZENECA-2018SE23640

PATIENT
  Age: 69 Year
  Sex: Female
  Weight: 97 kg

DRUGS (8)
  1. EUPHYTOSE [Suspect]
     Active Substance: HERBALS
     Route: 048
  2. FEBUXOSTAT. [Suspect]
     Active Substance: FEBUXOSTAT
     Route: 065
     Dates: start: 20130101
  3. OMEPRAZOLE. [Suspect]
     Active Substance: OMEPRAZOLE
     Route: 048
     Dates: start: 20130101
  4. IRBESARTAN. [Concomitant]
     Active Substance: IRBESARTAN
     Indication: HYPERTENSION
     Route: 048
     Dates: start: 20170201, end: 20170718
  5. DOLIPRANE [Suspect]
     Active Substance: ACETAMINOPHEN
     Route: 065
  6. EUPHYTOSE [Suspect]
     Active Substance: HERBALS
     Route: 048
     Dates: start: 20160101, end: 20170301
  7. KETOPROFEN. [Suspect]
     Active Substance: KETOPROFEN
     Indication: PAIN
     Route: 048
     Dates: start: 19980101
  8. CACIT [Concomitant]
     Active Substance: CALCIUM\VITAMIN D

REACTIONS (1)
  - Non-alcoholic steatohepatitis [Not Recovered/Not Resolved]

NARRATIVE: CASE EVENT DATE: 20170301
